FAERS Safety Report 25103734 (Version 1)
Quarter: 2025Q1

REPORT INFORMATION
  Report Type: Report from Study
  Country: JP (occurrence: JP)
  Receive Date: 20250321
  Receipt Date: 20250321
  Transmission Date: 20250409
  Serious: Yes (Other)
  Sender: ROCHE
  Company Number: JP-CHUGAI-2025008384

PATIENT
  Weight: 57.85 kg

DRUGS (10)
  1. RITUXIMAB [Suspect]
     Active Substance: RITUXIMAB
     Indication: Diffuse large B-cell lymphoma
     Dosage: 600 MILLIGRAM, QD
     Route: 042
     Dates: end: 20240717
  2. RITUXIMAB [Suspect]
     Active Substance: RITUXIMAB
     Dosage: 600 MILLIGRAM, QD
     Route: 042
     Dates: start: 20240814, end: 20240814
  3. POLIVY [Suspect]
     Active Substance: POLATUZUMAB VEDOTIN-PIIQ
     Indication: Diffuse large B-cell lymphoma
     Dosage: 70 MILLIGRAM, QD
     Route: 042
     Dates: end: 20240717
  4. POLIVY [Suspect]
     Active Substance: POLATUZUMAB VEDOTIN-PIIQ
     Dosage: 60 MILLIGRAM, QD
     Route: 042
     Dates: start: 20240814, end: 20240814
  5. METHYLPREDNISOLONE SODIUM SUCCINATE [Suspect]
     Active Substance: METHYLPREDNISOLONE SODIUM SUCCINATE
     Indication: Diffuse large B-cell lymphoma
     Dosage: 500 MILLIGRAM, QD
     Route: 042
     Dates: end: 20240717
  6. METHYLPREDNISOLONE SODIUM SUCCINATE [Suspect]
     Active Substance: METHYLPREDNISOLONE SODIUM SUCCINATE
     Dosage: 500 MILLIGRAM, QD
     Route: 042
     Dates: start: 20240814, end: 20240814
  7. CYCLOPHOSPHAMIDE [Suspect]
     Active Substance: CYCLOPHOSPHAMIDE
     Indication: Diffuse large B-cell lymphoma
     Dosage: 800 MILLIGRAM, QD
     Route: 042
     Dates: end: 20240717
  8. CYCLOPHOSPHAMIDE [Suspect]
     Active Substance: CYCLOPHOSPHAMIDE
     Dosage: 740 MILLIGRAM, QD
     Route: 042
     Dates: start: 20240814, end: 20240814
  9. DOXORUBICIN HYDROCHLORIDE [Suspect]
     Active Substance: DOXORUBICIN HYDROCHLORIDE
     Indication: Diffuse large B-cell lymphoma
     Dosage: 50 MILLIGRAM, QD
     Route: 042
     Dates: end: 20240717
  10. DOXORUBICIN HYDROCHLORIDE [Suspect]
     Active Substance: DOXORUBICIN HYDROCHLORIDE
     Dosage: 45 MILLIGRAM, QD
     Route: 042
     Dates: start: 20240814, end: 20240814

REACTIONS (3)
  - Constipation [Unknown]
  - Sepsis [Unknown]
  - Diarrhoea [Unknown]
